FAERS Safety Report 4384464-8 (Version None)
Quarter: 2004Q2

REPORT INFORMATION
  Report Type: 
  Country: None (occurrence: None)
  Receive Date: 20040607
  Receipt Date: 20031008
  Transmission Date: 20050107
  Serious: Yes (Other)
  Sender: FDA-Public Use
  Company Number: 348871

PATIENT

DRUGS (2)
  1. ISOTRETINOIN [Suspect]
     Indication: PSORIASIS
     Dosage: ORAL
     Route: 048
     Dates: end: 20030813
  2. YASMIN [Concomitant]

REACTIONS (3)
  - ABORTION INDUCED [None]
  - ADVERSE EVENT [None]
  - NO ADVERSE EFFECT [None]
